FAERS Safety Report 21916284 (Version 4)
Quarter: 2023Q1

REPORT INFORMATION
  Report Type: Spontaneous
  Country: CO (occurrence: CO)
  Receive Date: 20230126
  Receipt Date: 20230224
  Transmission Date: 20230418
  Serious: No
  Sender: FDA-Public Use
  Company Number: CO-PFIZER INC-PV202300012200

PATIENT
  Age: 13 Year
  Sex: Female

DRUGS (1)
  1. GENOTROPIN [Suspect]
     Active Substance: SOMATROPIN
     Dosage: UNK
     Route: 058
     Dates: start: 2019, end: 202212

REACTIONS (9)
  - Device failure [Unknown]
  - Device leakage [Unknown]
  - Drug dose omission by device [Unknown]
  - Injection site pain [Unknown]
  - Pruritus [Recovered/Resolved]
  - Injection site rash [Recovered/Resolved]
  - Purulence [Unknown]
  - Infection [Unknown]
  - Intentional dose omission [Unknown]
